FAERS Safety Report 7190656-5 (Version None)
Quarter: 2010Q4

REPORT INFORMATION
  Report Type: 
  Country: None (occurrence: None)
  Receive Date: 20101221
  Receipt Date: 20101221
  Transmission Date: 20110411
  Serious: No
  Sender: FDA-Public Use
  Company Number: None

PATIENT
  Sex: Male

DRUGS (2)
  1. CLARITIN [Suspect]
     Indication: MULTIPLE ALLERGIES
     Dosage: 10MG ONE QD PO
     Route: 048
     Dates: start: 20100101
  2. AZILECT [Suspect]
     Dosage: 1MG ONE QD PO
     Route: 048
     Dates: start: 20100101

REACTIONS (1)
  - HEADACHE [None]
